FAERS Safety Report 20689993 (Version 1)
Quarter: 2022Q2

REPORT INFORMATION
  Report Type: Spontaneous
  Country: DE (occurrence: DE)
  Receive Date: 20220408
  Receipt Date: 20220408
  Transmission Date: 20220721
  Serious: Yes (Other)
  Sender: FDA-Public Use
  Company Number: DE-Fresenius Kabi-FK202203981

PATIENT
  Age: 30 Year
  Sex: Male
  Weight: 67 kg

DRUGS (5)
  1. LEUCOVORIN CALCIUM [Suspect]
     Active Substance: LEUCOVORIN CALCIUM
     Indication: HER2 positive gastric cancer
     Dosage: 6 CYCLES
     Route: 065
  2. OXALIPLATIN [Suspect]
     Active Substance: OXALIPLATIN
     Indication: HER2 positive gastric cancer
     Dosage: 6 CYCLES
     Route: 065
  3. DOCETAXEL [Suspect]
     Active Substance: DOCETAXEL
     Indication: HER2 positive gastric cancer
     Dosage: 6 CYCLES
     Route: 065
  4. FLUOROURACIL [Suspect]
     Active Substance: FLUOROURACIL
     Indication: HER2 positive gastric cancer
     Dosage: 6 CYCLES CIV 24 H
     Route: 065
  5. RASBURICASE [Concomitant]
     Active Substance: RASBURICASE
     Indication: Tumour lysis syndrome
     Route: 065

REACTIONS (2)
  - Polyneuropathy [Unknown]
  - Haematotoxicity [Unknown]
